FAERS Safety Report 19664716 (Version 1)
Quarter: 2021Q3

REPORT INFORMATION
  Report Type: Spontaneous
  Country: US (occurrence: US)
  Receive Date: 20210806
  Receipt Date: 20210806
  Transmission Date: 20211014
  Serious: No
  Sender: FDA-Public Use
  Company Number: US-PURDUE-USA-2021-0272972

PATIENT
  Sex: Female

DRUGS (1)
  1. BUTRANS [Suspect]
     Active Substance: BUPRENORPHINE
     Indication: PAIN MANAGEMENT
     Dosage: 20 MCG/HR, WEEKLY
     Route: 062

REACTIONS (5)
  - Product physical issue [Unknown]
  - Application site irritation [Unknown]
  - Application site pruritus [Unknown]
  - Product adhesion issue [Unknown]
  - Application site erythema [Unknown]
